FAERS Safety Report 4295155-6 (Version None)
Quarter: 2004Q1

REPORT INFORMATION
  Report Type: 
  Country: None (occurrence: None)
  Receive Date: 20040212
  Receipt Date: 20040127
  Transmission Date: 20041129
  Serious: Yes (Hospitalization)
  Sender: FDA-Public Use
  Company Number: 181129

PATIENT
  Age: 53 Year
  Sex: Female

DRUGS (7)
  1. AVONEX [Suspect]
     Indication: MULTIPLE SCLEROSIS
     Dosage: 30 MCG QW IM
     Route: 030
     Dates: end: 20030701
  2. PAXIL [Concomitant]
  3. AMBIEN [Concomitant]
  4. ZYRTEC [Concomitant]
  5. ZANAFLEX [Concomitant]
  6. PREMARIN [Concomitant]
  7. DILANTIN [Concomitant]

REACTIONS (4)
  - CATHETER RELATED INFECTION [None]
  - DISEASE RECURRENCE [None]
  - MULTIPLE SCLEROSIS [None]
  - SEPTIC SHOCK [None]
